FAERS Safety Report 17366004 (Version 2)
Quarter: 2020Q1

REPORT INFORMATION
  Report Type: Report from Study
  Country: RU (occurrence: RU)
  Receive Date: 20200204
  Receipt Date: 20200326
  Transmission Date: 20200409
  Serious: Yes (Hospitalization)
  Sender: FDA-Public Use
  Company Number: RU-REGENERON PHARMACEUTICALS, INC.-2019-65220

PATIENT

DRUGS (3)
  1. CISPLATIN. [Suspect]
     Active Substance: CISPLATIN
     Indication: LUNG ADENOCARCINOMA STAGE IV
     Dosage: 100 MG/M2, Q3W
     Route: 042
     Dates: start: 20180713, end: 20181030
  2. GEMCITABINE. [Suspect]
     Active Substance: GEMCITABINE
     Indication: LUNG ADENOCARCINOMA STAGE IV
     Dosage: 1250 MG/M2, DAY 1 AND DAY 8 OF EVERY CYCLE
     Route: 042
     Dates: start: 20180713, end: 20181106
  3. CEMIPLIMAB [Suspect]
     Active Substance: CEMIPLIMAB
     Indication: LUNG ADENOCARCINOMA STAGE IV
     Dosage: 350 MG, Q3W
     Route: 042
     Dates: start: 20190119, end: 20190807

REACTIONS (1)
  - Cortisol decreased [Recovered/Resolved]

NARRATIVE: CASE EVENT DATE: 20190828
